FAERS Safety Report 4565390-8 (Version None)
Quarter: 2005Q1

REPORT INFORMATION
  Report Type: 
  Country: None (occurrence: None)
  Receive Date: 20050126
  Receipt Date: 20050106
  Transmission Date: 20050727
  Serious: Yes (Hospitalization, Other)
  Sender: FDA-Public Use
  Company Number: USA050187624

PATIENT
  Age: 25 Year
  Sex: Male
  Weight: 61 kg

DRUGS (3)
  1. HUMULIN N [Suspect]
     Dosage: 8 U/L AT BEDTIME
     Dates: start: 19820101
  2. HUMALOG [Suspect]
     Dosage: 28 U DAY
     Dates: start: 19980101
  3. HUMULIN R [Suspect]
     Dates: start: 19870101, end: 19980101

REACTIONS (6)
  - BLOOD GLUCOSE INCREASED [None]
  - DRUG INEFFECTIVE [None]
  - HAEMODIALYSIS [None]
  - PHARMACEUTICAL PRODUCT COMPLAINT [None]
  - RENAL FAILURE [None]
  - RENAL TRANSPLANT [None]
